FAERS Safety Report 25023980 (Version 1)
Quarter: 2025Q1

REPORT INFORMATION
  Report Type: Spontaneous
  Country: US (occurrence: US)
  Receive Date: 20250228
  Receipt Date: 20250228
  Transmission Date: 20250409
  Serious: No
  Sender: Kenvue
  Company Number: US-KENVUE-20250202251

PATIENT
  Sex: Female

DRUGS (2)
  1. PEPCID [Suspect]
     Active Substance: FAMOTIDINE
     Indication: Dyspepsia
     Route: 065
  2. Beauty mainstays supergoop daily moisturizer with spf [Concomitant]
     Indication: Chloasma
     Route: 065

REACTIONS (1)
  - Exposure during pregnancy [Unknown]
